FAERS Safety Report 22249706 (Version 1)
Quarter: 2023Q2

REPORT INFORMATION
  Report Type: Spontaneous
  Country: IT (occurrence: IT)
  Receive Date: 20230425
  Receipt Date: 20230425
  Transmission Date: 20230722
  Serious: Yes (Hospitalization)
  Sender: FDA-Public Use
  Company Number: None

PATIENT
  Age: 65 Year
  Sex: Female

DRUGS (3)
  1. VALIUM [Suspect]
     Active Substance: DIAZEPAM
     Indication: Anxiety
  2. HALCION [Suspect]
     Active Substance: TRIAZOLAM
     Indication: Insomnia
     Dosage: DOSAGGIO: 250?UNITA DI MISURA: MICROGRAMMI?VIA SOMMINISTRAZIONE: ORALE
     Route: 050
  3. XANAX [Suspect]
     Active Substance: ALPRAZOLAM
     Indication: Product used for unknown indication
     Dosage: DOSAGGIO: 0,25?UNITA DI MISURA: MILLIGRAMMI?VIA SOMMINISTRAZIONE: ORALE
     Route: 050

REACTIONS (2)
  - Anisocoria [Recovering/Resolving]
  - Sopor [Recovering/Resolving]

NARRATIVE: CASE EVENT DATE: 20230323
